FAERS Safety Report 9416635 (Version 2)
Quarter: 2013Q4

REPORT INFORMATION
  Report Type: Spontaneous
  Country: JP (occurrence: None)
  Receive Date: 20130719
  Receipt Date: 20131112
  Transmission Date: 20140711
  Serious: Yes (Death)
  Sender: FDA-Public Use
  Company Number: SYM-2013-06306

PATIENT
  Sex: 0

DRUGS (3)
  1. FLUOROURACIL [Suspect]
     Indication: OESOPHAGEAL CARCINOMA
     Dosage: 80MG/M2
  2. CISPLATIN [Suspect]
     Indication: OESOPHAGEAL CARCINOMA
     Dosage: 80MG/M2, MONTHLY
  3. DOCETAXEL [Suspect]
     Indication: OESOPHAGEAL CARCINOMA

REACTIONS (2)
  - Pneumonitis [None]
  - Interstitial lung disease [None]
